FAERS Safety Report 15709157 (Version 1)
Quarter: 2018Q4

REPORT INFORMATION
  Report Type: Spontaneous
  Country: US (occurrence: US)
  Receive Date: 20181128
  Receipt Date: 20181128
  Transmission Date: 20190205
  Serious: No
  Sender: FDA-Public Use
  Company Number: None

PATIENT
  Sex: Female

DRUGS (3)
  1. LETROZOLE. [Suspect]
     Active Substance: LETROZOLE
     Indication: BONE CANCER
     Route: 048
     Dates: start: 201808
  2. IBRANCE [Suspect]
     Active Substance: PALBOCICLIB
     Indication: BREAST CANCER
     Route: 048
     Dates: start: 201807
  3. LETROZOLE. [Suspect]
     Active Substance: LETROZOLE
     Indication: BREAST CANCER
     Route: 048
     Dates: start: 201808

REACTIONS (3)
  - Arthritis [None]
  - Amnesia [None]
  - Bone pain [None]
